FAERS Safety Report 24565632 (Version 2)
Quarter: 2024Q4

REPORT INFORMATION
  Report Type: Report from Study
  Country: US (occurrence: US)
  Receive Date: 20241030
  Receipt Date: 20241105
  Transmission Date: 20250114
  Serious: Yes (Hospitalization)
  Sender: ROCHE
  Company Number: US-ROCHE-10000116910

PATIENT
  Age: 55 Year
  Sex: Female

DRUGS (9)
  1. OCREVUS [Suspect]
     Active Substance: OCRELIZUMAB
     Indication: Multiple sclerosis
     Dosage: MORE DOSAGE INFORMATION IS 300 MG SINGLE-USE VIAL
     Route: 042
  2. WELLBUTRIN [Concomitant]
     Active Substance: BUPROPION HYDROCHLORIDE
  3. ZYRTEC [Concomitant]
     Active Substance: CETIRIZINE HYDROCHLORIDE
  4. VITAMIN D3 [Concomitant]
     Active Substance: CHOLECALCIFEROL
  5. PROZAC [Concomitant]
     Active Substance: FLUOXETINE HYDROCHLORIDE
  6. ROBAXIN [Concomitant]
     Active Substance: METHOCARBAMOL
  7. MYRBETRIQ [Concomitant]
     Active Substance: MIRABEGRON
  8. DITROPAN XL [Concomitant]
     Active Substance: OXYBUTYNIN CHLORIDE
  9. PRILOSEC [Concomitant]
     Active Substance: OMEPRAZOLE MAGNESIUM

REACTIONS (22)
  - Obstructive sleep apnoea syndrome [Unknown]
  - Gastrooesophageal reflux disease [Unknown]
  - Cholelithiasis [Unknown]
  - Reflux gastritis [Unknown]
  - Constipation [Unknown]
  - Adrenogenital syndrome [Unknown]
  - Polycystic ovaries [Unknown]
  - Muscular weakness [Unknown]
  - Sciatica [Unknown]
  - Intervertebral disc degeneration [Unknown]
  - Osteoarthritis [Unknown]
  - Exostosis [Unknown]
  - Greater trochanteric pain syndrome [Unknown]
  - Hypertonic bladder [Unknown]
  - Back pain [Unknown]
  - Obesity [Unknown]
  - Gait disturbance [Unknown]
  - Nocturia [Unknown]
  - Somnolence [Unknown]
  - Demyelination [Unknown]
  - Therapeutic response shortened [Unknown]
  - Arthralgia [Unknown]
